FAERS Safety Report 18271386 (Version 2)
Quarter: 2021Q2

REPORT INFORMATION
  Report Type: Spontaneous
  Country: US (occurrence: US)
  Receive Date: 20200916
  Receipt Date: 20210615
  Transmission Date: 20210717
  Serious: Yes (Hospitalization, Disabling)
  Sender: FDA-Public Use
  Company Number: US-TEVA-2020-US-1828579

PATIENT
  Age: 44 Year
  Sex: Female
  Weight: 76.73 kg

DRUGS (4)
  1. DOCETAXEL ACCORD [Suspect]
     Active Substance: DOCETAXEL
     Indication: BREAST CANCER FEMALE
     Dosage: NUMBER OF CYCLE ? 9, FREQUENCY: EVERY 3 WEEKS, DOSAGE: 135MG
     Route: 042
     Dates: start: 20130717, end: 20140103
  2. PERTUZUMAB. [Suspect]
     Active Substance: PERTUZUMAB
     Indication: BREAST CANCER FEMALE
     Dosage: FREQUENCY: EVERY 3 WEEKS,
     Route: 042
     Dates: start: 20130717
  3. TRASTUZUMAB. [Suspect]
     Active Substance: TRASTUZUMAB
     Indication: BREAST CANCER FEMALE
     Dosage: FREQUENCY: EVERY 3 WEEKS,
     Route: 042
     Dates: start: 20130717
  4. DOCETAXEL ACTAVIS [Suspect]
     Active Substance: DOCETAXEL
     Indication: BREAST CANCER FEMALE
     Dosage: NUMBER OF CYCLE ? 9, FREQUENCY: EVERY 3 WEEKS, DOSAGE: 135MG
     Route: 042
     Dates: start: 20130717, end: 20140103

REACTIONS (16)
  - Stomatitis [Recovered/Resolved]
  - Nausea [Recovered/Resolved]
  - Fatigue [Unknown]
  - Febrile neutropenia [Recovered/Resolved]
  - Myalgia [Recovering/Resolving]
  - Skin exfoliation [Recovered/Resolved]
  - Rash [Recovered/Resolved]
  - Hypoaesthesia [Recovering/Resolving]
  - Alopecia areata [Recovered/Resolved]
  - Rash follicular [Recovered/Resolved]
  - Muscle spasms [Unknown]
  - Pruritus [Unknown]
  - Madarosis [Recovered/Resolved]
  - Hair texture abnormal [Recovered/Resolved]
  - Hair colour changes [Recovered/Resolved]
  - Paraesthesia [Recovering/Resolving]

NARRATIVE: CASE EVENT DATE: 2013
